FAERS Safety Report 20575026 (Version 1)
Quarter: 2022Q1

REPORT INFORMATION
  Report Type: Spontaneous
  Country: US (occurrence: US)
  Receive Date: 20220310
  Receipt Date: 20220310
  Transmission Date: 20220423
  Serious: No
  Sender: FDA-Public Use
  Company Number: US-BEH-2022142970

PATIENT
  Age: 83 Year
  Sex: Female

DRUGS (2)
  1. PRIVIGEN [Suspect]
     Active Substance: HUMAN IMMUNOGLOBULIN G
     Indication: Hypogammaglobulinaemia
     Dosage: UNK
     Route: 065
     Dates: start: 20220125
  2. PRIVIGEN [Suspect]
     Active Substance: HUMAN IMMUNOGLOBULIN G
     Dosage: UNK
     Route: 065
     Dates: start: 20220201

REACTIONS (16)
  - Rash [Recovered/Resolved]
  - Recalled product administered [Recovered/Resolved]
  - Pruritus [Recovered/Resolved]
  - Recalled product administered [Recovered/Resolved]
  - Burning sensation [Recovered/Resolved]
  - Recalled product administered [Recovered/Resolved]
  - Urticaria [Recovered/Resolved]
  - Recalled product administered [Recovered/Resolved]
  - Rash [Recovered/Resolved]
  - Recalled product administered [Recovered/Resolved]
  - Pruritus [Recovered/Resolved]
  - Recalled product administered [Recovered/Resolved]
  - Burning sensation [Recovered/Resolved]
  - Recalled product administered [Recovered/Resolved]
  - Urticaria [Recovered/Resolved]
  - Recalled product administered [Recovered/Resolved]

NARRATIVE: CASE EVENT DATE: 20220125
